FAERS Safety Report 22067436 (Version 1)
Quarter: 2023Q1

REPORT INFORMATION
  Report Type: Spontaneous
  Country: US (occurrence: US)
  Receive Date: 20230307
  Receipt Date: 20230307
  Transmission Date: 20230418
  Serious: Yes (Other)
  Sender: FDA-Public Use
  Company Number: US-BRISTOL-MYERS SQUIBB COMPANY-2023-030930

PATIENT
  Age: 78 Year
  Sex: Female

DRUGS (1)
  1. REVLIMID [Suspect]
     Active Substance: LENALIDOMIDE
     Indication: Dehydration
     Dosage: DOSE AND FREQUENCY: NEVER FILLED
     Dates: start: 20180116

REACTIONS (2)
  - Thrombosis [Recovered/Resolved]
  - Off label use [Unknown]
